FAERS Safety Report 9616216 (Version 1)
Quarter: 2013Q4

REPORT INFORMATION
  Report Type: Spontaneous
  Country: US (occurrence: US)
  Receive Date: 20131011
  Receipt Date: 20131011
  Transmission Date: 20140711
  Serious: No
  Sender: FDA-Public Use
  Company Number: US-PURDUE-USA-2013-0100026

PATIENT
  Sex: Female

DRUGS (2)
  1. BUTRANS [Suspect]
     Indication: FIBROMYALGIA
     Route: 062
  2. BUTRANS [Suspect]
     Indication: BACK PAIN

REACTIONS (7)
  - Inadequate analgesia [Unknown]
  - Application site pruritus [Unknown]
  - Application site pain [Unknown]
  - Drug ineffective [Unknown]
  - Application site paraesthesia [Unknown]
  - Hyperhidrosis [Unknown]
  - Product physical issue [Unknown]
